FAERS Safety Report 7388468-2 (Version None)
Quarter: 2011Q2

REPORT INFORMATION
  Report Type: 
  Country: None (occurrence: None)
  Receive Date: 20110401
  Receipt Date: 20110328
  Transmission Date: 20111010
  Serious: Yes (Death)
  Sender: FDA-Public Use
  Company Number: PHHY2011AR25482

PATIENT
  Sex: Male

DRUGS (1)
  1. DIOVAN [Suspect]
     Indication: HYPERTENSION
     Dosage: 160 MG, (ONE TABLET DAILY)
     Route: 048
     Dates: start: 20060710

REACTIONS (2)
  - CARDIO-RESPIRATORY ARREST [None]
  - NEOPLASM MALIGNANT [None]
